FAERS Safety Report 23753157 (Version 1)
Quarter: 2024Q2

REPORT INFORMATION
  Report Type: Spontaneous
  Country: US (occurrence: None)
  Receive Date: 20240417
  Receipt Date: 20240417
  Transmission Date: 20240716
  Serious: Yes (Hospitalization)
  Sender: FDA-Public Use
  Company Number: None

PATIENT
  Sex: Male

DRUGS (6)
  1. TACROLIMUS [Suspect]
     Active Substance: TACROLIMUS
     Indication: Heart transplant
     Dosage: 1.5MG 1MG IN AM AND 0.5MG PM ORAL?
     Route: 048
     Dates: start: 20210917
  2. MYCOPHENOLATE MOFETIL [Suspect]
     Active Substance: MYCOPHENOLATE MOFETIL
     Indication: Heart transplant
     Dosage: 500MG TWICE A DAY ORL?
     Route: 048
     Dates: start: 20210917
  3. TORSEMIDE [Suspect]
     Active Substance: TORSEMIDE
  4. EVEROLIMUS [Concomitant]
     Active Substance: EVEROLIMUS
  5. METOLAZONE [Concomitant]
     Active Substance: METOLAZONE
  6. METOLAZONE [Concomitant]
     Active Substance: METOLAZONE

REACTIONS (3)
  - Hypervolaemia [None]
  - Acute kidney injury [None]
  - Cardiac failure [None]
